FAERS Safety Report 8549405-8 (Version None)
Quarter: 2012Q3

REPORT INFORMATION
  Report Type: 
  Country: None (occurrence: None)
  Receive Date: 20120730
  Receipt Date: 20120725
  Transmission Date: 20120928
  Serious: Yes (Congenital Anomaly)
  Sender: FDA-Public Use
  Company Number: NO-PFIZER INC-2012179645

PATIENT
  Age: 13 Year
  Sex: Male

DRUGS (1)
  1. EFFEXOR [Suspect]
     Indication: DEPRESSION
     Dosage: 75 MG, UNK
     Route: 064

REACTIONS (2)
  - AUTISM SPECTRUM DISORDER [None]
  - MATERNAL EXPOSURE TIMING UNSPECIFIED [None]
